FAERS Safety Report 6035237-1 (Version None)
Quarter: 2009Q1

REPORT INFORMATION
  Report Type: 
  Country: None (occurrence: None)
  Receive Date: 20090109
  Receipt Date: 20090105
  Transmission Date: 20090719
  Serious: Yes (Hospitalization)
  Sender: FDA-Public Use
  Company Number: 2008JP005874

PATIENT
  Age: 72 Year
  Sex: Male
  Weight: 52.8 kg

DRUGS (3)
  1. VESICARE [Suspect]
     Indication: POLLAKIURIA
     Dosage: 5 MG, ORAL
     Route: 048
     Dates: start: 20081115, end: 20081119
  2. ZOLPIDEM TARTRATE [Concomitant]
  3. CHOREITOU (HERBAL EXTRACT NOS) FORMULATION UNKNOWN [Concomitant]

REACTIONS (2)
  - HENOCH-SCHONLEIN PURPURA [None]
  - PAIN IN EXTREMITY [None]
